FAERS Safety Report 15719008 (Version 2)
Quarter: 2019Q1

REPORT INFORMATION
  Report Type: Spontaneous
  Country: JP (occurrence: JP)
  Receive Date: 20181213
  Receipt Date: 20190108
  Transmission Date: 20190417
  Serious: Yes (Other)
  Sender: FDA-Public Use
  Company Number: JP-PFIZER INC-2018510324

PATIENT
  Age: 63 Year
  Sex: Female

DRUGS (2)
  1. CRIZOTINIB [Suspect]
     Active Substance: CRIZOTINIB
     Indication: LYMPHADENOPATHY
     Dosage: 250 MG, 2X/DAY
  2. CRIZOTINIB [Suspect]
     Active Substance: CRIZOTINIB
     Indication: PULMONARY MASS

REACTIONS (1)
  - Erythema multiforme [Recovering/Resolving]
